FAERS Safety Report 20054594 (Version 2)
Quarter: 2022Q2

REPORT INFORMATION
  Report Type: Spontaneous
  Country: US (occurrence: US)
  Receive Date: 20211110
  Receipt Date: 20220411
  Transmission Date: 20220721
  Serious: No
  Sender: FDA-Public Use
  Company Number: US-TAKEDA-2021TUS069976

PATIENT
  Sex: Male
  Weight: 61 kg

DRUGS (3)
  1. CUVITRU [Suspect]
     Active Substance: HUMAN IMMUNOGLOBULIN G
     Indication: Primary immunodeficiency syndrome
     Dosage: 8 MILLIGRAM
     Route: 065
  2. CUVITRU [Suspect]
     Active Substance: HUMAN IMMUNOGLOBULIN G
     Indication: Immunodeficiency congenital
     Dosage: 1 MILLIGRAM
     Route: 065
  3. CUVITRU [Suspect]
     Active Substance: HUMAN IMMUNOGLOBULIN G
     Indication: Autonomic nervous system imbalance
     Dosage: UNK
     Route: 042
     Dates: start: 202107

REACTIONS (7)
  - Infusion site reaction [Unknown]
  - Rash [Unknown]
  - Infusion site swelling [Unknown]
  - Infusion site pain [Unknown]
  - Infusion site erythema [Unknown]
  - Influenza like illness [Unknown]
  - Fatigue [Unknown]
